FAERS Safety Report 9641641 (Version 1)
Quarter: 2013Q4

REPORT INFORMATION
  Report Type: Spontaneous
  Country: TR (occurrence: TR)
  Receive Date: 20131023
  Receipt Date: 20131023
  Transmission Date: 20140711
  Serious: Yes (Life-Threatening, Hospitalization, Other)
  Sender: FDA-Public Use
  Company Number: TR-GLAXOSMITHKLINE-B0934165A

PATIENT
  Age: 15 Year
  Sex: Female

DRUGS (1)
  1. RYTMONORM [Suspect]
     Indication: PRODUCT USED FOR UNKNOWN INDICATION
     Dosage: 150MG SEE DOSAGE TEXT
     Route: 048

REACTIONS (10)
  - Cardio-respiratory arrest [Recovered/Resolved]
  - Suicide attempt [Unknown]
  - Overdose [Recovered/Resolved]
  - Toxicity to various agents [Recovered/Resolved]
  - Depressed level of consciousness [Unknown]
  - Pulse absent [Unknown]
  - Metabolic acidosis [Unknown]
  - Electrocardiogram QRS complex prolonged [Unknown]
  - Bradycardia [Unknown]
  - Respiratory alkalosis [Unknown]
